FAERS Safety Report 7950049-7 (Version None)
Quarter: 2011Q4

REPORT INFORMATION
  Report Type: 
  Country: None (occurrence: None)
  Receive Date: 20111130
  Receipt Date: 20111122
  Transmission Date: 20120403
  Serious: Yes (Death, Life-Threatening)
  Sender: FDA-Public Use
  Company Number: JP-B.I. PHARMACEUTICALS,INC./RIDGEFIELD-2011-BP-23150NB

PATIENT
  Sex: Male
  Weight: 54 kg

DRUGS (21)
  1. CLEANAL [Concomitant]
     Indication: PNEUMONIA
     Dosage: 600 MG
     Route: 048
     Dates: start: 20110921, end: 20110930
  2. KALGUT [Concomitant]
     Indication: CARDIAC FAILURE CONGESTIVE
     Dosage: 10 MG
     Route: 048
     Dates: start: 20110925, end: 20110927
  3. PRADAXA [Suspect]
     Indication: ATRIAL FIBRILLATION
     Dosage: 220 MG
     Route: 048
     Dates: start: 20110925, end: 20110929
  4. DIGOXIN [Concomitant]
     Indication: ATRIAL FIBRILLATION
     Dosage: 0.125 MG
     Route: 048
     Dates: start: 20110928, end: 20110930
  5. HANP [Concomitant]
     Indication: CARDIAC FAILURE CONGESTIVE
     Dosage: 1000 MCG
     Route: 042
     Dates: start: 20110920, end: 20110928
  6. SEISHOKU [Concomitant]
     Indication: FASTING
     Dosage: 500 ML
     Route: 042
     Dates: start: 20110920, end: 20110921
  7. UNASYN [Concomitant]
     Indication: PNEUMONIA
     Route: 042
     Dates: start: 20110920, end: 20110925
  8. PHYSIO 35 [Concomitant]
     Indication: FASTING
     Dosage: 1000 ML
     Route: 042
     Dates: start: 20110921, end: 20110922
  9. TORSEMIDE [Concomitant]
     Indication: CARDIAC FAILURE CONGESTIVE
     Dosage: 8 MG
     Route: 048
     Dates: start: 20110921, end: 20110930
  10. LAC-B [Concomitant]
     Indication: CONSTIPATION
     Dosage: 2 G
     Route: 048
     Dates: start: 20110921, end: 20110930
  11. LANSOPRAZOLE [Concomitant]
     Indication: GASTROOESOPHAGEAL REFLUX DISEASE
     Dosage: 30 MG
     Route: 042
     Dates: start: 20110920, end: 20110930
  12. TRICHLORMETHIAZIDE [Concomitant]
     Dosage: 1 MG
     Route: 048
     Dates: start: 20110925, end: 20110925
  13. SLOW-K [Concomitant]
     Indication: HYPOKALAEMIA
     Dosage: 1200 MG
     Route: 048
     Dates: start: 20110922, end: 20110930
  14. LOXONIN [Concomitant]
     Indication: BACK PAIN
     Dosage: 100 MG
     Route: 062
     Dates: start: 20110922, end: 20110930
  15. RABEPRAZOLE SODIUM [Concomitant]
     Indication: GASTROOESOPHAGEAL REFLUX DISEASE
     Dosage: 10 MG
     Route: 048
     Dates: start: 20110921, end: 20110930
  16. HOKUNALIN:TAPE [Concomitant]
     Indication: PNEUMONIA
     Dosage: 2 MG
     Route: 062
     Dates: start: 20110921, end: 20110930
  17. LASIX [Concomitant]
     Indication: CARDIAC FAILURE CONGESTIVE
     Dosage: 20 MG
     Route: 048
     Dates: start: 20110927, end: 20110930
  18. TRICHLORMETHIAZIDE [Concomitant]
     Indication: CARDIAC FAILURE CONGESTIVE
     Dosage: 1 MG
     Route: 048
     Dates: start: 20110925, end: 20110930
  19. HEPARIN [Concomitant]
     Indication: ATRIAL FIBRILLATION
     Dosage: 10000 U
     Route: 042
     Dates: start: 20110920, end: 20110925
  20. ASPIRIN [Concomitant]
     Indication: ATRIAL FIBRILLATION
     Dosage: 100 MG
     Route: 048
     Dates: start: 20110921, end: 20110930
  21. KN NO.3 [Concomitant]
     Indication: FLUID REPLACEMENT
     Dosage: 200 ML
     Route: 042
     Dates: start: 20110923, end: 20110925

REACTIONS (1)
  - MULTI-ORGAN FAILURE [None]
